FAERS Safety Report 4602873-6 (Version None)
Quarter: 2005Q1

REPORT INFORMATION
  Report Type: 
  Country: None (occurrence: None)
  Receive Date: 20050309
  Receipt Date: 20040817
  Transmission Date: 20050727
  Serious: Yes (Other)
  Sender: FDA-Public Use
  Company Number: SE-GLAXOSMITHKLINE-B0343276A

PATIENT
  Sex: Male

DRUGS (3)
  1. PAROXETINE HCL [Suspect]
     Dosage: 1TAB SEE DOSAGE TEXT
     Dates: start: 19990802, end: 20000325
  2. PROPAVAN [Concomitant]
     Dosage: 50MG AS REQUIRED
  3. IMOVANE [Concomitant]
     Dosage: 7MG AS REQUIRED

REACTIONS (10)
  - AGGRESSION [None]
  - ANXIETY [None]
  - CONFUSIONAL STATE [None]
  - DEPRESSION [None]
  - DRUG WITHDRAWAL SYNDROME [None]
  - JUDGEMENT IMPAIRED [None]
  - PAIN IN EXTREMITY [None]
  - PANIC DISORDER [None]
  - SOCIAL PHOBIA [None]
  - SUICIDAL IDEATION [None]
